FAERS Safety Report 10015679 (Version 2)
Quarter: 2014Q2

REPORT INFORMATION
  Report Type: Spontaneous
  Country: US (occurrence: US)
  Receive Date: 20140317
  Receipt Date: 20140508
  Transmission Date: 20141212
  Serious: No
  Sender: FDA-Public Use
  Company Number: US-PFIZER INC-2014075660

PATIENT
  Age: 50 Year
  Sex: Female

DRUGS (5)
  1. NEURONTIN [Suspect]
     Dosage: UNK
  2. KEFLEX [Suspect]
     Dosage: UNK
  3. PERCOCET [Suspect]
     Dosage: UNK
  4. SUDAFED [Suspect]
     Dosage: UNK
  5. ULTRAM [Suspect]
     Dosage: UNK

REACTIONS (4)
  - Drug hypersensitivity [Unknown]
  - Rubber sensitivity [Unknown]
  - Contrast media allergy [Unknown]
  - Dermatitis contact [Unknown]
